FAERS Safety Report 18044244 (Version 2)
Quarter: 2020Q3

REPORT INFORMATION
  Report Type: Spontaneous
  Country: US (occurrence: US)
  Receive Date: 20200720
  Receipt Date: 20200721
  Transmission Date: 20201103
  Serious: Yes (Death)
  Sender: FDA-Public Use
  Company Number: US-PFIZER INC-2019115756

PATIENT
  Age: 83 Year
  Sex: Female

DRUGS (2)
  1. REVATIO [Suspect]
     Active Substance: SILDENAFIL CITRATE
     Indication: PULMONARY HYPERTENSION
     Dosage: 20 MG, UNK
  2. REVATIO [Suspect]
     Active Substance: SILDENAFIL CITRATE
     Dosage: 2 DF, 3X/DAY
     Route: 048
     Dates: end: 20200709

REACTIONS (3)
  - Off label use [Unknown]
  - Sepsis [Fatal]
  - Product use issue [Unknown]

NARRATIVE: CASE EVENT DATE: 20200709
